FAERS Safety Report 9028423 (Version 2)
Quarter: 2013Q1

REPORT INFORMATION
  Report Type: Spontaneous
  Country: BR (occurrence: BR)
  Receive Date: 20130124
  Receipt Date: 20130225
  Transmission Date: 20140127
  Serious: Yes (Other)
  Sender: FDA-Public Use
  Company Number: BR-PFIZER INC-2013029513

PATIENT
  Sex: Male

DRUGS (4)
  1. DETRUSITOL LA [Suspect]
     Dosage: 4 MG, 1X/DAY
     Route: 048
  2. CLONAZEPAM [Concomitant]
     Dosage: ONE CAPSULE EVERY 12 HOURS
  3. AMITRIPTYLINE [Concomitant]
     Dosage: ONE CAPSULE EVERY 12 HOURS
  4. PHENYTOIN [Concomitant]
     Dosage: ONE CAPSULE EVERY 12 HOURS

REACTIONS (1)
  - Cerebrovascular accident [Unknown]
